FAERS Safety Report 24424974 (Version 1)
Quarter: 2024Q4

REPORT INFORMATION
  Report Type: Spontaneous
  Country: BE (occurrence: BE)
  Receive Date: 20241010
  Receipt Date: 20241010
  Transmission Date: 20250115
  Serious: Yes (Hospitalization)
  Sender: AIRGAS
  Company Number: BE-FAMHP-DHH-N2024-12267

PATIENT
  Age: 14 Year
  Sex: Male
  Weight: 42.4 kg

DRUGS (2)
  1. NITROUS OXIDE [Suspect]
     Active Substance: NITROUS OXIDE
     Indication: Pain
     Dates: start: 20240831, end: 20240831
  2. OXYGEN [Suspect]
     Active Substance: OXYGEN
     Dates: start: 20240831, end: 20240831

REACTIONS (7)
  - Dyspnoea [Recovered/Resolved]
  - Agitation [Recovered/Resolved]
  - Confusional state [Recovered/Resolved]
  - Inappropriate affect [Recovered/Resolved]
  - Memory impairment [Recovered/Resolved]
  - Crying [Recovered/Resolved]
  - Aggression [Recovered/Resolved]

NARRATIVE: CASE EVENT DATE: 20240831
